FAERS Safety Report 4308535-7 (Version None)
Quarter: 2004Q1

REPORT INFORMATION
  Report Type: 
  Country: None (occurrence: None)
  Receive Date: 20040226
  Receipt Date: 20030819
  Transmission Date: 20041129
  Serious: Yes (Hospitalization)
  Sender: FDA-Public Use
  Company Number: 2003173172US

PATIENT
  Age: 55 Year
  Sex: Male
  Weight: 63.5 kg

DRUGS (7)
  1. CELEBREX [Suspect]
     Indication: MIGRAINE PROPHYLAXIS
     Dosage: 200 MG, BID, ORAL
     Route: 048
     Dates: start: 20030101
  2. REMERON [Concomitant]
  3. EFFEXOR [Concomitant]
  4. CELEXA [Concomitant]
  5. ATIVAN [Concomitant]
  6. CLONAZEPAM [Concomitant]
  7. BOTOX [Concomitant]

REACTIONS (4)
  - CHEST PAIN [None]
  - DEPRESSION [None]
  - DRUG INEFFECTIVE [None]
  - GASTROOESOPHAGEAL REFLUX DISEASE [None]
